FAERS Safety Report 4610809-7 (Version None)
Quarter: 2005Q2

REPORT INFORMATION
  Report Type: 
  Country: None (occurrence: None)
  Receive Date: 20050223
  Receipt Date: 20040223
  Transmission Date: 20051028
  Serious: Yes (Disabling)
  Sender: FDA-Public Use
  Company Number: WAES 0402USA01714

PATIENT
  Age: 69 Year
  Sex: Male
  Weight: 121.564 kg

DRUGS (5)
  1. ZOCOR [Suspect]
     Indication: HYPERLIPIDAEMIA
     Dosage: 40 MG/HS/PO
     Route: 048
     Dates: start: 20040206, end: 20040224
  2. PRINIVIL [Concomitant]
  3. FLUVASTATIN SODIUM [Concomitant]
  4. GLYBURIDE [Concomitant]
  5. TERAZOSIN HYDROCHLORIDE [Concomitant]

REACTIONS (1)
  - FACIAL PALSY [None]
